FAERS Safety Report 16797966 (Version 1)
Quarter: 2019Q3

REPORT INFORMATION
  Report Type: Spontaneous
  Country: FR (occurrence: FR)
  Receive Date: 20190912
  Receipt Date: 20190912
  Transmission Date: 20191005
  Serious: Yes (Hospitalization, Other)
  Sender: FDA-Public Use
  Company Number: FR-AUROBINDO-AUR-APL-2019-059545

PATIENT
  Sex: Female

DRUGS (10)
  1. SABRIL [Concomitant]
     Active Substance: VIGABATRIN
     Indication: EPILEPSY
     Dosage: 2000 MILLIGRAM, ONCE A DAY
     Route: 065
  2. DEPAKINE CHRONO [Suspect]
     Active Substance: VALPROATE SODIUM
     Indication: EPILEPSY
     Dosage: 1 DOSAGE FORM, ONCE A DAY
     Route: 048
     Dates: start: 199801
  3. DEPAKINE CHRONO [Suspect]
     Active Substance: VALPROATE SODIUM
     Dosage: 3 DOSAGE FORM, ONCE A DAY
     Route: 048
     Dates: start: 198710
  4. LEXOMIL [Concomitant]
     Active Substance: BROMAZEPAM
     Dosage: UNK UNK, UNK
     Route: 065
  5. LAMOTRIGINE. [Suspect]
     Active Substance: LAMOTRIGINE
     Indication: EPILEPSY
     Dosage: UNK
     Route: 048
  6. DEPAKINE CHRONO [Suspect]
     Active Substance: VALPROATE SODIUM
     Dosage: 3 DOSAGE FORM, ONCE A DAY
     Route: 048
     Dates: start: 1991
  7. SABRIL [Concomitant]
     Active Substance: VIGABATRIN
     Dosage: 1000 MILLIGRAM, ONCE A DAY
     Route: 065
     Dates: start: 199409
  8. GABITRIL [Concomitant]
     Active Substance: TIAGABINE HYDROCHLORIDE
     Indication: EPILEPSY
     Dosage: UNK UNK, UNK
     Route: 065
     Dates: start: 199801
  9. CLONAZEPAM. [Suspect]
     Active Substance: CLONAZEPAM
     Indication: EPILEPSY
     Dosage: UNK UNK,UNK
     Route: 048
  10. PHENOBARBITAL. [Concomitant]
     Active Substance: PHENOBARBITAL
     Indication: EPILEPSY
     Dosage: UNK UNK, UNK
     Route: 065
     Dates: start: 199707

REACTIONS (6)
  - Anticonvulsant drug level increased [Unknown]
  - Epilepsy [Recovering/Resolving]
  - Exposure during pregnancy [Unknown]
  - Abortion spontaneous [Unknown]
  - Cortical dysplasia [Unknown]
  - Drug ineffective [Recovering/Resolving]

NARRATIVE: CASE EVENT DATE: 199409
